FAERS Safety Report 7910549-2 (Version None)
Quarter: 2011Q4

REPORT INFORMATION
  Report Type: 
  Country: None (occurrence: None)
  Receive Date: 20111111
  Receipt Date: 20111030
  Transmission Date: 20120403
  Serious: Yes (Other)
  Sender: FDA-Public Use
  Company Number: PHHY2011GB098486

PATIENT
  Age: 52 Year
  Sex: Female

DRUGS (3)
  1. LACOSAMIDE [Concomitant]
     Indication: PARTIAL SEIZURES
     Dosage: 100 MG, DAILY
  2. LEVETIRACETAM [Concomitant]
     Indication: PARTIAL SEIZURES
     Dosage: 2000 MG, DAILY
  3. CARBAMAZEPINE [Suspect]
     Indication: PARTIAL SEIZURES
     Dosage: 400 MG, DAILY

REACTIONS (1)
  - NEUROTOXICITY [None]
